FAERS Safety Report 6599552-5 (Version None)
Quarter: 2010Q1

REPORT INFORMATION
  Report Type: 
  Country: None (occurrence: None)
  Receive Date: 20100224
  Receipt Date: 20100210
  Transmission Date: 20100710
  Serious: Yes (Other)
  Sender: FDA-Public Use
  Company Number: AU-JNJFOC-20100205205

PATIENT
  Sex: Male

DRUGS (7)
  1. DURAGESIC-100 [Suspect]
     Indication: BACK PAIN
     Route: 062
  2. DURAGESIC-100 [Suspect]
     Route: 062
  3. DURAGESIC-100 [Suspect]
     Route: 062
  4. OXYCONTIN [Concomitant]
     Route: 065
  5. ATENOLOL [Concomitant]
     Indication: BLOOD PRESSURE
     Route: 065
  6. EFFEXOR XR [Concomitant]
     Route: 065
  7. EFFEXOR XR [Concomitant]
     Route: 065

REACTIONS (9)
  - APPLICATION SITE ERYTHEMA [None]
  - APPLICATION SITE HAEMATOMA [None]
  - APPLICATION SITE PRURITUS [None]
  - BREAKTHROUGH PAIN [None]
  - MALAISE [None]
  - NAUSEA [None]
  - PRODUCT QUALITY ISSUE [None]
  - TREATMENT NONCOMPLIANCE [None]
  - VOMITING [None]
